FAERS Safety Report 5684892-4 (Version None)
Quarter: 2008Q1

REPORT INFORMATION
  Report Type: 
  Country: None (occurrence: None)
  Receive Date: 20080328
  Receipt Date: 20071115
  Transmission Date: 20080703
  Serious: Yes (Other)
  Sender: FDA-Public Use
  Company Number: US-BRISTOL-MYERS SQUIBB COMPANY-13984562

PATIENT
  Age: 65 Year
  Sex: Male
  Weight: 71 kg

DRUGS (10)
  1. ERBITUX [Suspect]
     Indication: NEOPLASM MALIGNANT
     Dates: start: 20070501
  2. FENTANYL [Concomitant]
  3. OXYCODONE HCL [Concomitant]
  4. LANSOPRAZOLE [Concomitant]
  5. GABAPENTIN [Concomitant]
  6. CYCLOBENZAPRINE HCL [Concomitant]
  7. ZOLPIDEM [Concomitant]
  8. ATROVENT [Concomitant]
  9. ALBUTEROL [Concomitant]
  10. SOLU-MEDROL [Concomitant]

REACTIONS (1)
  - METASTASES TO SPINE [None]
